FAERS Safety Report 21126383 (Version 2)
Quarter: 2022Q3

REPORT INFORMATION
  Report Type: Report from Study
  Country: CN (occurrence: CN)
  Receive Date: 20220725
  Receipt Date: 20220803
  Transmission Date: 20221026
  Serious: Yes (Hospitalization)
  Sender: FDA-Public Use
  Company Number: CN-NOVARTISPH-NVSC2022CN164402

PATIENT
  Age: 41 Year
  Sex: Female

DRUGS (6)
  1. BROLUCIZUMAB [Suspect]
     Active Substance: BROLUCIZUMAB
     Indication: Diabetic retinopathy
     Dosage: 6 MG
     Route: 031
     Dates: start: 20210908
  2. AMLODIPINE\VALSARTAN [Concomitant]
     Active Substance: AMLODIPINE\VALSARTAN
     Indication: Hypertension
     Dosage: UNK
     Route: 065
     Dates: start: 201909
  3. INSULIN HUMAN [Concomitant]
     Active Substance: INSULIN HUMAN
     Indication: Type 2 diabetes mellitus
     Dosage: UNK
     Route: 065
     Dates: start: 2010
  4. PROTAMINE RECOMBINANT HUMAN INSULIN [Concomitant]
     Indication: Type 2 diabetes mellitus
     Dosage: UNK
     Route: 065
     Dates: start: 2010
  5. SODIUM HYALURONATE [Concomitant]
     Active Substance: HYALURONATE SODIUM
     Indication: Diabetic retinopathy
     Dosage: UNK
     Route: 065
     Dates: start: 20211115
  6. LECITHIN [Concomitant]
     Active Substance: LECITHIN
     Indication: Vitreous opacities
     Dosage: UNK
     Route: 065
     Dates: start: 20220408

REACTIONS (1)
  - Retinal detachment [Not Recovered/Not Resolved]

NARRATIVE: CASE EVENT DATE: 20220715
